FAERS Safety Report 21166595 (Version 1)
Quarter: 2022Q3

REPORT INFORMATION
  Report Type: Spontaneous
  Country: US (occurrence: US)
  Receive Date: 20220803
  Receipt Date: 20220803
  Transmission Date: 20221027
  Serious: Yes (Other)
  Sender: FDA-Public Use
  Company Number: US-GLAXOSMITHKLINE-US2022111569

PATIENT

DRUGS (4)
  1. ADVAIR DISKUS [Suspect]
     Active Substance: FLUTICASONE PROPIONATE\SALMETEROL XINAFOATE
     Indication: Chronic obstructive pulmonary disease
     Dosage: UNK, 250/50MCG
     Dates: start: 200201
  2. PREDNISONE [Concomitant]
     Active Substance: PREDNISONE
     Indication: Gout
     Dosage: 5 MG
  3. PREDNISONE [Concomitant]
     Active Substance: PREDNISONE
     Indication: Arthritis
  4. COUMADIN [Concomitant]
     Active Substance: WARFARIN SODIUM
     Indication: Anticoagulant therapy
     Dosage: 7.5 MG

REACTIONS (5)
  - Diabetes mellitus [Not Recovered/Not Resolved]
  - Cardiac failure congestive [Not Recovered/Not Resolved]
  - Renal failure [Not Recovered/Not Resolved]
  - Knee arthroplasty [Unknown]
  - Fall [Unknown]

NARRATIVE: CASE EVENT DATE: 20130101
